FAERS Safety Report 9732128 (Version 2)
Quarter: 2013Q4

REPORT INFORMATION
  Report Type: Report from Study
  Country: NL (occurrence: NL)
  Receive Date: 20131205
  Receipt Date: 20131205
  Transmission Date: 20140711
  Serious: Yes (Hospitalization)
  Sender: FDA-Public Use
  Company Number: NL-ASTELLAS-2012US005453

PATIENT
  Age: 16 Year
  Sex: Male
  Weight: 51 kg

DRUGS (13)
  1. TACROLIMUS OINTMENT [Suspect]
     Indication: DERMATITIS ATOPIC
     Dosage: 0.03 %, 3-4 TIMES PER WEEK
     Route: 061
     Dates: start: 20080825
  2. VENTOLIN                           /00139501/ [Concomitant]
     Indication: ASTHMA
     Dosage: UNK UNK, PRN
     Route: 048
  3. SERETIDE [Concomitant]
     Indication: ASTHMA
     Dosage: UNK UNK, PRN
     Route: 048
  4. DESLORATADINE [Concomitant]
     Indication: SEASONAL ALLERGY
     Dosage: UNK UNK, BID
     Route: 048
  5. EUMOVATE [Concomitant]
     Indication: ECZEMA
     Dosage: UNK UNK, PRN
     Route: 061
  6. BETNELAN                           /00008501/ [Concomitant]
     Indication: ECZEMA
     Dosage: UNK UNK, PRN
     Route: 061
  7. ALIMEMAZINE                        /00055202/ [Concomitant]
     Indication: SEASONAL ALLERGY
     Dosage: UNK UNK, BID
     Route: 048
  8. FLUTICASONE [Concomitant]
     Indication: SEASONAL ALLERGY
     Dosage: UNK UNK, PRN
     Route: 045
  9. FLUTICASONE [Concomitant]
     Indication: DERMATITIS ATOPIC
     Dosage: UNK
     Route: 061
  10. HYDROCORTISONE [Concomitant]
     Indication: DERMATITIS ATOPIC
     Dosage: UNK
     Route: 061
  11. DIPHENHYDRAMINE [Concomitant]
     Indication: DERMATITIS ATOPIC
     Dosage: UNK
     Route: 065
  12. HYDROXYZINE [Concomitant]
     Indication: DERMATITIS ATOPIC
     Dosage: UNK
     Route: 065
  13. CULTIVATE [Concomitant]
     Indication: DERMATITIS ATOPIC
     Dosage: UNK
     Route: 065

REACTIONS (3)
  - Knee operation [Unknown]
  - Knee impingement syndrome [Recovered/Resolved with Sequelae]
  - Procedural pain [Recovered/Resolved]
